FAERS Safety Report 24111610 (Version 2)
Quarter: 2024Q3

REPORT INFORMATION
  Report Type: Report from Study
  Country: US (occurrence: US)
  Receive Date: 20240718
  Receipt Date: 20240724
  Transmission Date: 20241017
  Serious: Yes (Hospitalization)
  Sender: APELLIS PHARMACEUTICALS
  Company Number: US-APELLIS-2024-APL-0000459

PATIENT

DRUGS (1)
  1. PEGCETACOPLAN [Suspect]
     Active Substance: PEGCETACOPLAN
     Indication: Paroxysmal nocturnal haemoglobinuria
     Dosage: 1080 (UNIT NOT SPECIFIED), TWICE WEEKLY
     Route: 058
     Dates: start: 20220712, end: 20240712

REACTIONS (6)
  - Blood urine present [Unknown]
  - Dysphagia [Unknown]
  - Blood lactate dehydrogenase increased [Unknown]
  - Gastroenteritis viral [Unknown]
  - Haemoglobin abnormal [Unknown]
  - Off label use [Unknown]

NARRATIVE: CASE EVENT DATE: 20240704
